FAERS Safety Report 6678539-8 (Version None)
Quarter: 2010Q2

REPORT INFORMATION
  Report Type: 
  Country: None (occurrence: None)
  Receive Date: 20100413
  Receipt Date: 20091218
  Transmission Date: 20101027
  Serious: Yes (Other)
  Sender: FDA-Public Use
  Company Number: US-JNJFOC-20090903296

PATIENT
  Sex: Female
  Weight: 113.4 kg

DRUGS (19)
  1. LEVAQUIN [Suspect]
     Indication: URINARY TRACT INFECTION
     Route: 065
  2. LEVAQUIN [Suspect]
     Route: 065
  3. LEVAQUIN [Suspect]
     Route: 042
  4. ALLOPURINOL [Concomitant]
     Indication: GOUT
     Route: 065
  5. CELEBREX [Concomitant]
     Indication: BACK PAIN
     Route: 065
  6. COUMADIN [Concomitant]
     Indication: THROMBOSIS
     Route: 065
  7. DIGOXIN [Concomitant]
     Indication: CARDIAC DISORDER
     Route: 065
  8. IRON [Concomitant]
     Indication: VITAMIN SUPPLEMENTATION
     Route: 065
  9. LANTUS [Concomitant]
     Indication: DIABETES MELLITUS
     Route: 065
  10. NOVOLOG [Concomitant]
     Indication: BLOOD INSULIN
     Route: 065
  11. LASIX [Concomitant]
     Indication: FLUID RETENTION
     Route: 065
  12. LIPITOR [Concomitant]
     Indication: BLOOD CHOLESTEROL
     Route: 065
  13. PRILOSEC [Concomitant]
     Indication: DYSPEPSIA
     Route: 065
  14. TOPROL-XL [Concomitant]
     Indication: BLOOD PRESSURE
     Route: 065
  15. ASPIRIN [Concomitant]
     Route: 065
  16. VICODIN [Concomitant]
     Indication: MUSCULOSKELETAL PAIN
     Route: 065
  17. VICODIN [Concomitant]
     Indication: BACK PAIN
     Route: 065
  18. VICODIN [Concomitant]
     Indication: PAIN IN EXTREMITY
     Route: 065
  19. CALCIUM [Concomitant]
     Indication: VITAMIN SUPPLEMENTATION
     Route: 065

REACTIONS (3)
  - ARTHRALGIA [None]
  - JOINT INJURY [None]
  - ROTATOR CUFF SYNDROME [None]
